FAERS Safety Report 8889490 (Version 2)
Quarter: 2013Q1

REPORT INFORMATION
  Report Type: Spontaneous
  Country: PL (occurrence: None)
  Receive Date: 20121031
  Receipt Date: 20121212
  Transmission Date: 20140127
  Serious: Yes (Hospitalization)
  Sender: FDA-Public Use
  Company Number: PL-1194806

PATIENT
  Age: 59 Year
  Sex: Male
  Weight: 81 kg

DRUGS (6)
  1. NEVANAC [Suspect]
     Route: 047
     Dates: start: 201202, end: 201206
  2. YELLOX [Suspect]
     Route: 047
     Dates: start: 201203
  3. DIURAMID [Concomitant]
  4. ARNICA MONTANA [Concomitant]
  5. LOTEMAX [Concomitant]
  6. MAXITROL [Concomitant]

REACTIONS (2)
  - Cardiac failure [None]
  - Incorrect drug administration duration [None]
